FAERS Safety Report 5803082-5 (Version None)
Quarter: 2008Q2

REPORT INFORMATION
  Report Type: 
  Country: None (occurrence: None)
  Receive Date: 20080626
  Receipt Date: 20080311
  Transmission Date: 20081010
  Serious: Yes (Other)
  Sender: FDA-Public Use
  Company Number: A03200800561

PATIENT
  Age: 87 Year
  Sex: Male
  Weight: 61.2356 kg

DRUGS (9)
  1. AMBIEN CR [Suspect]
     Indication: INSOMNIA
     Dosage: 12.5 MG HS - ORAL
     Route: 048
     Dates: start: 20080209, end: 20080209
  2. METOPROLOL TARTRATE [Concomitant]
  3. AMIODARONE [Concomitant]
  4. MAGNESIUM SULFATE [Concomitant]
  5. ACETYLSALICYLIC ACID SRT [Concomitant]
  6. BUMETANIDE [Concomitant]
  7. PANCRELIPASE [Concomitant]
  8. POTASSIUM CHLORIDE [Concomitant]
  9. EPOGEN [Concomitant]

REACTIONS (2)
  - DIZZINESS [None]
  - HALLUCINATION [None]
